FAERS Safety Report 9807696 (Version 1)
Quarter: 2014Q1

REPORT INFORMATION
  Report Type: Report from Study
  Country: DE (occurrence: DE)
  Receive Date: 20140110
  Receipt Date: 20140110
  Transmission Date: 20141002
  Serious: Yes (Death)
  Sender: FDA-Public Use
  Company Number: DE-SA-2014SA002322

PATIENT
  Age: 69 Year
  Sex: Female
  Weight: 74 kg

DRUGS (1)
  1. CABAZITAXEL [Suspect]
     Indication: BREAST CANCER
     Route: 042
     Dates: start: 20131218, end: 20131218

REACTIONS (1)
  - Death [Fatal]
